FAERS Safety Report 14665125 (Version 1)
Quarter: 2018Q1

REPORT INFORMATION
  Report Type: Spontaneous
  Country: US (occurrence: US)
  Receive Date: 20180320
  Receipt Date: 20180320
  Transmission Date: 20180509
  Serious: Yes (Death)
  Sender: FDA-Public Use
  Company Number: None

PATIENT
  Sex: Female

DRUGS (12)
  1. OMEPRAZOLE. [Concomitant]
     Active Substance: OMEPRAZOLE
  2. PROPRANOLOL [Concomitant]
     Active Substance: PROPRANOLOL HYDROCHLORIDE
  3. SYNVISC-ONE [Suspect]
     Active Substance: HYALURONATE SODIUM
     Indication: OSTEOARTHRITIS
     Dosage: ?          OTHER FREQUENCY:Q 6 MONTHS;?
     Route: 014
     Dates: start: 20170717
  4. HUMALOG [Concomitant]
     Active Substance: INSULIN LISPRO
  5. LISINOPRIL. [Concomitant]
     Active Substance: LISINOPRIL
  6. TOPAMAX [Concomitant]
     Active Substance: TOPIRAMATE
  7. TYLENOL [Concomitant]
     Active Substance: ACETAMINOPHEN
  8. HUMULIN R [Concomitant]
     Active Substance: INSULIN HUMAN
  9. CARV/LEVO [Concomitant]
  10. HYDRALAZINE [Concomitant]
     Active Substance: HYDRALAZINE HYDROCHLORIDE
  11. VITAMIN D3 [Concomitant]
     Active Substance: CHOLECALCIFEROL
  12. BOTOX [Suspect]
     Active Substance: ONABOTULINUMTOXINA
     Indication: TORTICOLLIS
     Dosage: ?          OTHER FREQUENCY:Q 12 WEEKS;?
     Route: 030
     Dates: start: 20131004

REACTIONS (1)
  - Death [None]
